FAERS Safety Report 25272497 (Version 3)
Quarter: 2025Q2

REPORT INFORMATION
  Report Type: Spontaneous
  Country: FR (occurrence: FR)
  Receive Date: 20250506
  Receipt Date: 20250522
  Transmission Date: 20250717
  Serious: Yes (Hospitalization)
  Sender: SANDOZ
  Company Number: FR-002147023-NVSC2023FR216318

PATIENT

DRUGS (9)
  1. CYCLOSPORINE [Suspect]
     Active Substance: CYCLOSPORINE
     Indication: Prophylaxis against graft versus host disease
     Dosage: 100 MG, QD, (CAPSULE)
     Route: 048
     Dates: start: 20190505, end: 20190510
  2. CYCLOSPORINE [Suspect]
     Active Substance: CYCLOSPORINE
     Dosage: 150 MG, QD, (CAPSULE)
     Route: 048
     Dates: start: 20190605, end: 20190702
  3. CYCLOSPORINE [Suspect]
     Active Substance: CYCLOSPORINE
     Route: 048
     Dates: start: 20190505, end: 20190505
  4. CYCLOSPORINE [Suspect]
     Active Substance: CYCLOSPORINE
     Route: 042
  5. MYCOPHENOLATE MOFETIL [Suspect]
     Active Substance: MYCOPHENOLATE MOFETIL
     Dosage: 750 MG, QD
     Route: 042
     Dates: start: 20190505, end: 20190529
  6. MYCOPHENOLATE MOFETIL [Suspect]
     Active Substance: MYCOPHENOLATE MOFETIL
     Dosage: 750 MG, QD
     Route: 042
     Dates: start: 20190505, end: 20190604
  7. MYCOPHENOLATE MOFETIL [Suspect]
     Active Substance: MYCOPHENOLATE MOFETIL
     Dosage: UNK, QD
     Route: 048
  8. MYCOPHENOLATE MOFETIL [Suspect]
     Active Substance: MYCOPHENOLATE MOFETIL
     Route: 042
     Dates: start: 20190506, end: 20190604
  9. MYCOPHENOLATE MOFETIL [Suspect]
     Active Substance: MYCOPHENOLATE MOFETIL
     Indication: Prophylaxis against graft versus host disease
     Route: 048
     Dates: start: 20190505, end: 20190505

REACTIONS (6)
  - Cholelithiasis [Unknown]
  - Guillain-Barre syndrome [Unknown]
  - Metastases to meninges [Unknown]
  - Diarrhoea [Unknown]
  - Vomiting [Unknown]
  - Gastroenteritis viral [Unknown]

NARRATIVE: CASE EVENT DATE: 20200119
